FAERS Safety Report 5283555-7 (Version None)
Quarter: 2007Q1

REPORT INFORMATION
  Report Type: 
  Country: None (occurrence: None)
  Receive Date: 20061226
  Receipt Date: 20061019
  Transmission Date: 20070707
  Serious: No
  Sender: FDA-Public Use
  Company Number: 2006PV023578

PATIENT
  Age: 59 Year
  Sex: Female
  Weight: 131.5431 kg

DRUGS (4)
  1. SYMLIN [Suspect]
     Indication: DIABETES MELLITUS NON-INSULIN-DEPENDENT
     Dosage: SEE IMAGE
     Route: 058
     Dates: start: 20061010, end: 20061024
  2. SYMLIN [Suspect]
     Indication: DIABETES MELLITUS NON-INSULIN-DEPENDENT
     Dosage: SEE IMAGE
     Route: 058
     Dates: start: 20061024
  3. HUMULIN 70/30 [Suspect]
     Indication: DIABETES MELLITUS NON-INSULIN-DEPENDENT
     Dosage: 35 UNITS; TID; SC
     Route: 058
  4. . [Concomitant]

REACTIONS (7)
  - BLOOD GLUCOSE INCREASED [None]
  - DRY THROAT [None]
  - INCREASED UPPER AIRWAY SECRETION [None]
  - MEDICATION ERROR [None]
  - SINUS CONGESTION [None]
  - TREMOR [None]
  - WEIGHT FLUCTUATION [None]
